FAERS Safety Report 6343834-9 (Version None)
Quarter: 2009Q3

REPORT INFORMATION
  Report Type: 
  Country: None (occurrence: None)
  Receive Date: 20090908
  Receipt Date: 20090828
  Transmission Date: 20100115
  Serious: Yes (Hospitalization, Other)
  Sender: FDA-Public Use
  Company Number: PHHY2009JP35457

PATIENT
  Age: 23 Year
  Sex: Male

DRUGS (7)
  1. TEGRETOL [Suspect]
     Indication: FRONTAL LOBE EPILEPSY
     Dosage: 1100 MG, UNK
     Route: 048
  2. TEGRETOL [Suspect]
     Dosage: 1200 MG, UNK
     Route: 048
  3. GABAPENTIN [Suspect]
     Indication: FRONTAL LOBE EPILEPSY
     Dosage: 600 MG, UNK
     Route: 048
  4. GABAPENTIN [Suspect]
     Dosage: 1800 MG, UNK
     Route: 048
  5. VALPROATE SODIUM [Concomitant]
     Indication: FRONTAL LOBE EPILEPSY
     Dosage: 2400 MG, UNK
     Route: 048
  6. SULTIAME [Concomitant]
     Indication: FRONTAL LOBE EPILEPSY
     Dosage: 300 MG, UNK
     Route: 048
  7. ACETAZOLAMIDE [Concomitant]
     Indication: FRONTAL LOBE EPILEPSY
     Dosage: 500 MG, UNK
     Route: 048

REACTIONS (8)
  - CEREBRAL ATROPHY [None]
  - CONDITION AGGRAVATED [None]
  - CONVULSION [None]
  - DYSKINESIA [None]
  - ELECTROENCEPHALOGRAM ABNORMAL [None]
  - FALL [None]
  - INJURY [None]
  - MYOCLONUS [None]
